FAERS Safety Report 5026227-6 (Version None)
Quarter: 2006Q2

REPORT INFORMATION
  Report Type: 
  Country: None (occurrence: None)
  Receive Date: 20060608
  Receipt Date: 20060531
  Transmission Date: 20061013
  Serious: Yes (Hospitalization)
  Sender: FDA-Public Use
  Company Number: HQWYE618001JUN06

PATIENT
  Age: 85 Year
  Sex: Female

DRUGS (1)
  1. PANTOLOC (PANTOPRAZOLE, UNSPEC) [Suspect]

REACTIONS (2)
  - AMNESIA [None]
  - HALLUCINATION, AUDITORY [None]
